FAERS Safety Report 4334024-X (Version None)
Quarter: 2004Q1

REPORT INFORMATION
  Report Type: 
  Country: None (occurrence: None)
  Receive Date: 20040329
  Receipt Date: 20040112
  Transmission Date: 20041129
  Serious: No
  Sender: FDA-Public Use
  Company Number: 04P-163-0247101-00

PATIENT
  Age: 49 Year
  Sex: Female

DRUGS (4)
  1. HUMIRA [Suspect]
     Indication: RHEUMATOID ARTHRITIS
     Dosage: 40 MG, 1 IN 2 WK, SUBCUTANEOUS
     Route: 058
     Dates: start: 20031029
  2. ATENOLOL [Concomitant]
  3. FLUVOXAMINE MALEATE [Concomitant]
  4. ASCORBIC ACID [Concomitant]

REACTIONS (3)
  - DYSPNOEA [None]
  - INFLUENZA [None]
  - SINUS DISORDER [None]
